FAERS Safety Report 20810549 (Version 1)
Quarter: 2022Q2

REPORT INFORMATION
  Report Type: Spontaneous
  Country: US (occurrence: US)
  Receive Date: 20220510
  Receipt Date: 20220510
  Transmission Date: 20220720
  Serious: Yes (Hospitalization)
  Sender: FDA-Public Use
  Company Number: US-PURDUE-USA-2022-0293597

PATIENT
  Age: 46 Year
  Sex: Female

DRUGS (3)
  1. BETADINE [Suspect]
     Active Substance: POVIDONE-IODINE
     Indication: Pseudomonas infection
     Dosage: (1-2 TIMES), DAILY
     Route: 003
  2. BETADINE [Suspect]
     Active Substance: POVIDONE-IODINE
     Indication: Postoperative care
  3. BETADINE [Suspect]
     Active Substance: POVIDONE-IODINE
     Indication: Drainage

REACTIONS (3)
  - Pain [Recovered/Resolved]
  - Feeling cold [Recovered/Resolved]
  - Burning sensation [Recovered/Resolved]

NARRATIVE: CASE EVENT DATE: 20210924
